FAERS Safety Report 9295939 (Version 1)
Quarter: 2013Q2

REPORT INFORMATION
  Report Type: Spontaneous
  Country: FR (occurrence: FR)
  Receive Date: 20130517
  Receipt Date: 20130517
  Transmission Date: 20140414
  Serious: Yes (Hospitalization, Other)
  Sender: FDA-Public Use
  Company Number: FR-SHIRE-ALL1-2013-03145

PATIENT
  Age: 65 Year
  Sex: Female

DRUGS (2)
  1. XAGRID [Suspect]
     Indication: ESSENTIAL THROMBOCYTHAEMIA
     Dosage: 1 MG, 1X/DAY:QD
     Route: 048
     Dates: end: 201303
  2. XAGRID [Suspect]
     Dosage: 0.5 MG, 1X/DAY:QD
     Route: 048
     Dates: start: 201301

REACTIONS (2)
  - Pulmonary oedema [Recovered/Resolved]
  - Cardiac failure [Recovering/Resolving]
